FAERS Safety Report 18325319 (Version 1)
Quarter: 2020Q3

REPORT INFORMATION
  Report Type: Spontaneous
  Country: FR (occurrence: FR)
  Receive Date: 20200929
  Receipt Date: 20200929
  Transmission Date: 20201103
  Serious: Yes (Death)
  Sender: FDA-Public Use
  Company Number: FR-009507513-2009FRA009290

PATIENT
  Age: 80 Year
  Sex: Male
  Weight: 88 kg

DRUGS (4)
  1. KEYTRUDA [Suspect]
     Active Substance: PEMBROLIZUMAB
     Indication: ACRAL LENTIGINOUS MELANOMA STAGE IV
     Dosage: 400 MILLIGRAM, ONCE
     Route: 041
     Dates: start: 20200812, end: 20200812
  2. FENOFIBRATE. [Concomitant]
     Active Substance: FENOFIBRATE
     Dosage: UNK
  3. KENZEN [Concomitant]
     Active Substance: CANDESARTAN CILEXETIL
     Dosage: UNK
  4. VESICARE [Concomitant]
     Active Substance: SOLIFENACIN SUCCINATE
     Dosage: UNK

REACTIONS (4)
  - Septic shock [Fatal]
  - Erythema multiforme [Fatal]
  - Cardiac failure [Fatal]
  - Hepatocellular injury [Fatal]

NARRATIVE: CASE EVENT DATE: 20200820
